FAERS Safety Report 7259620-1 (Version None)
Quarter: 2011Q1

REPORT INFORMATION
  Report Type: 
  Country: None (occurrence: None)
  Receive Date: 20110130
  Receipt Date: 20100921
  Transmission Date: 20110831
  Serious: No
  Sender: FDA-Public Use
  Company Number: US-ABBOTT-10P-163-0663466-00

PATIENT
  Sex: Female
  Weight: 69.916 kg

DRUGS (11)
  1. HUMIRA [Suspect]
  2. LORACET [Concomitant]
     Indication: PAIN
  3. KLONOPIN [Concomitant]
     Indication: PRODUCT USED FOR UNKNOWN INDICATION
  4. IRON [Concomitant]
     Indication: PRODUCT USED FOR UNKNOWN INDICATION
  5. HUMIRA [Suspect]
     Indication: CROHN'S DISEASE
     Dates: start: 20100805, end: 20100805
  6. VITAMIN B-12 [Concomitant]
     Indication: PRODUCT USED FOR UNKNOWN INDICATION
  7. ESTRADIOL [Concomitant]
     Indication: PRODUCT USED FOR UNKNOWN INDICATION
  8. BENICAR [Concomitant]
     Indication: HYPERTENSION
     Dates: start: 20100903
  9. LASIX [Concomitant]
     Indication: FLUID RETENTION
     Dates: start: 20100903
  10. KLOR-CON [Concomitant]
     Indication: PRODUCT USED FOR UNKNOWN INDICATION
  11. BENICAR [Concomitant]

REACTIONS (12)
  - PANIC ATTACK [None]
  - STRESS [None]
  - INCREASED APPETITE [None]
  - NAUSEA [None]
  - KIDNEY INFECTION [None]
  - HEADACHE [None]
  - PYREXIA [None]
  - BACK PAIN [None]
  - BLOOD PRESSURE INCREASED [None]
  - DEPRESSION [None]
  - ANXIETY [None]
  - ABDOMINAL PAIN UPPER [None]
